FAERS Safety Report 11152947 (Version 1)
Quarter: 2015Q2

REPORT INFORMATION
  Report Type: Report from Study
  Country: CO (occurrence: CO)
  Receive Date: 20150601
  Receipt Date: 20150601
  Transmission Date: 20150821
  Serious: Yes (Death, Hospitalization, Other)
  Sender: FDA-Public Use
  Company Number: CO-ALEXION-A201502049

PATIENT

DRUGS (1)
  1. SOLIRIS [Suspect]
     Active Substance: ECULIZUMAB
     Indication: HAEMOLYTIC URAEMIC SYNDROME
     Dosage: 1200 MG, Q12D
     Route: 042
     Dates: start: 20120222

REACTIONS (7)
  - Blood urea abnormal [Unknown]
  - Haemoglobin abnormal [Unknown]
  - Inappropriate schedule of drug administration [Unknown]
  - White blood cell disorder [Unknown]
  - Platelet count abnormal [Unknown]
  - Cardio-respiratory arrest [Fatal]
  - Blood creatinine abnormal [Unknown]

NARRATIVE: CASE EVENT DATE: 20150507
